FAERS Safety Report 16738358 (Version 1)
Quarter: 2019Q3

REPORT INFORMATION
  Report Type: Spontaneous
  Country: CA (occurrence: CA)
  Receive Date: 20190825
  Receipt Date: 20190825
  Transmission Date: 20191005
  Serious: Yes (Other)
  Sender: FDA-Public Use
  Company Number: CA-SAMSUNG BIOEPIS-SB-2019-23705

PATIENT
  Age: 52 Year
  Sex: Female

DRUGS (2)
  1. ACETAMINOPHEN/IBUPROFEN [Concomitant]
     Indication: PRODUCT USED FOR UNKNOWN INDICATION
     Dosage: AS REQUIRED
     Route: 065
  2. INFLIXIMAB [Suspect]
     Active Substance: INFLIXIMAB
     Indication: COLITIS ULCERATIVE
     Route: 042

REACTIONS (10)
  - Brain injury [Unknown]
  - Road traffic accident [Unknown]
  - Seizure [Unknown]
  - Product use issue [Unknown]
  - Coma [Unknown]
  - Constipation [Unknown]
  - Eating disorder [Unknown]
  - Abdominal pain [Unknown]
  - Coeliac disease [Unknown]
  - Weight decreased [Unknown]
